FAERS Safety Report 11068227 (Version 1)
Quarter: 2015Q2

REPORT INFORMATION
  Report Type: Spontaneous
  Country: US (occurrence: None)
  Receive Date: 20150424
  Receipt Date: 20150424
  Transmission Date: 20150821
  Serious: No
  Sender: FDA-Public Use
  Company Number: None

PATIENT
  Age: 46 Year
  Sex: Male

DRUGS (1)
  1. ANDRODERM [Suspect]
     Active Substance: TESTOSTERONE
     Indication: TESTICULAR DISORDER
     Dosage: 4 MG PER DAY, 1 PATCH DAILY, TRANSDERMAL SYSTEM
     Route: 062
     Dates: start: 20140303

REACTIONS (2)
  - Application site reaction [None]
  - Skin hypertrophy [None]

NARRATIVE: CASE EVENT DATE: 20150312
